FAERS Safety Report 17044350 (Version 1)
Quarter: 2019Q4

REPORT INFORMATION
  Report Type: Spontaneous
  Country: US (occurrence: US)
  Receive Date: 20191116
  Receipt Date: 20191116
  Transmission Date: 20200122
  Serious: Yes (Life-Threatening, Hospitalization, Other)
  Sender: FDA-Public Use
  Company Number: None

PATIENT
  Age: 29 Year
  Sex: Female

DRUGS (1)
  1. CYTOTEC [Suspect]
     Active Substance: MISOPROSTOL
     Indication: LABOUR STIMULATION
     Dates: start: 20181123

REACTIONS (4)
  - Exposure during pregnancy [None]
  - Caesarean section [None]
  - Uterine haemorrhage [None]
  - Hysterectomy [None]

NARRATIVE: CASE EVENT DATE: 20181124
